FAERS Safety Report 5645307-5 (Version None)
Quarter: 2008Q1

REPORT INFORMATION
  Report Type: 
  Country: None (occurrence: None)
  Receive Date: 20080229
  Receipt Date: 20080222
  Transmission Date: 20080703
  Serious: Yes (Other)
  Sender: FDA-Public Use
  Company Number: A0712507A

PATIENT
  Age: 41 Year
  Sex: Female
  Weight: 77 kg

DRUGS (4)
  1. PARNATE [Suspect]
     Indication: PANIC DISORDER
     Dosage: 40MG TWICE PER DAY
     Route: 048
     Dates: start: 19970101
  2. STELAZINE [Concomitant]
     Dates: start: 19970101
  3. RIVOTRIL [Concomitant]
     Dates: start: 19970101
  4. FRONTAL [Concomitant]
     Dates: start: 19980101

REACTIONS (10)
  - ALOPECIA [None]
  - ANXIETY [None]
  - DIARRHOEA [None]
  - DYSPNOEA [None]
  - FIBROMYALGIA [None]
  - MIGRAINE [None]
  - OVERDOSE [None]
  - PANIC DISORDER [None]
  - PREMENSTRUAL SYNDROME [None]
  - SUICIDAL IDEATION [None]
